FAERS Safety Report 8211740-0 (Version None)
Quarter: 2012Q1

REPORT INFORMATION
  Report Type: 
  Country: None (occurrence: None)
  Receive Date: 20120315
  Receipt Date: 20120306
  Transmission Date: 20120608
  Serious: Yes (Hospitalization, Other)
  Sender: FDA-Public Use
  Company Number: US-JNJFOC-20120102327

PATIENT
  Age: 6 Decade
  Sex: Male

DRUGS (6)
  1. XARELTO [Suspect]
     Indication: THROMBOSIS PROPHYLAXIS
     Route: 048
     Dates: start: 20111201
  2. ULTRAM [Suspect]
     Indication: KNEE ARTHROPLASTY
     Dates: start: 20111201
  3. PERCOCET [Concomitant]
     Dates: start: 20110101
  4. ULTRAM [Suspect]
     Indication: PAIN
     Dates: start: 20111201
  5. XARELTO [Suspect]
     Indication: KNEE ARTHROPLASTY
     Route: 048
     Dates: start: 20111201
  6. NSAID'S [Concomitant]

REACTIONS (5)
  - OESOPHAGEAL RUPTURE [None]
  - RETCHING [None]
  - OESOPHAGEAL HAEMORRHAGE [None]
  - VOMITING [None]
  - NAUSEA [None]
